FAERS Safety Report 4270012-X (Version None)
Quarter: 2004Q1

REPORT INFORMATION
  Report Type: 
  Country: None (occurrence: None)
  Receive Date: 20040114
  Receipt Date: 20030904
  Transmission Date: 20041129
  Serious: Yes (Other)
  Sender: FDA-Public Use
  Company Number: PHEH2003US08050

PATIENT
  Age: 67 Year
  Sex: Female

DRUGS (18)
  1. AREDIA [Suspect]
     Dosage: UNK, QMO
  2. TAXOTERE [Concomitant]
  3. TRASTUZUMAB [Concomitant]
  4. AUGMENTIN [Concomitant]
     Dosage: UNK/UNK
     Dates: start: 20010101
  5. AUGMENTIN [Concomitant]
     Dosage: 4000 MG/PER DAY
  6. WARFARIN SODIUM [Concomitant]
     Dosage: 2 MG, QD
  7. PROCRIT [Concomitant]
     Dosage: UNK, PRN
  8. AROMASIN [Concomitant]
  9. DIURETICS [Concomitant]
  10. DECADRON [Concomitant]
  11. FAMOTIDINE [Concomitant]
  12. ADVAIR DISKUS 250/50 [Concomitant]
  13. NEXIUM [Concomitant]
  14. SLOW-FE [Concomitant]
  15. LACTOBACILLUS ACIDOPHILUS [Concomitant]
  16. VITAMIN C [Concomitant]
  17. CALCIUM [Concomitant]
  18. MULTI-VITAMINS [Concomitant]

REACTIONS (11)
  - BONE DISORDER [None]
  - DENTAL CARIES [None]
  - FALL [None]
  - IMPAIRED HEALING [None]
  - INFECTION [None]
  - JAW FRACTURE [None]
  - LOCAL SWELLING [None]
  - OSTEONECROSIS [None]
  - PAIN [None]
  - PATHOLOGICAL FRACTURE [None]
  - WOUND SECRETION [None]
